FAERS Safety Report 5802205-1 (Version None)
Quarter: 2008Q3

REPORT INFORMATION
  Report Type: 
  Country: None (occurrence: None)
  Receive Date: 20080707
  Receipt Date: 20080625
  Transmission Date: 20090109
  Serious: Yes (Life-Threatening, Hospitalization)
  Sender: FDA-Public Use
  Company Number: JP-PFIZER INC-2008053794

PATIENT
  Age: 55 Year
  Sex: Female

DRUGS (2)
  1. SOLU-CORTEF [Suspect]
     Indication: URTICARIA
     Dosage: DAILY DOSE:200MG
     Route: 042
     Dates: start: 20080618, end: 20080618
  2. STRONG NEO MINOTIN C [Suspect]
     Indication: URTICARIA
     Dosage: TEXT:ONE DOSE
     Route: 050
     Dates: start: 20080618, end: 20080618

REACTIONS (1)
  - SHOCK [None]
